FAERS Safety Report 8486823-0 (Version None)
Quarter: 2012Q3

REPORT INFORMATION
  Report Type: 
  Country: None (occurrence: None)
  Receive Date: 20120704
  Receipt Date: 20120625
  Transmission Date: 20120928
  Serious: Yes (Death, Hospitalization)
  Sender: FDA-Public Use
  Company Number: US-BRISTOL-MYERS SQUIBB COMPANY-15863384

PATIENT
  Age: 62 Year
  Sex: Male

DRUGS (13)
  1. YERVOY [Suspect]
     Indication: METASTATIC MALIGNANT MELANOMA
     Dates: start: 20110610
  2. LANTUS [Concomitant]
  3. METFORMIN HCL [Concomitant]
  4. PERCOCET [Concomitant]
  5. LANTUS [Concomitant]
  6. BENAZEPRIL HYDROCHLORIDE [Concomitant]
  7. METFORMIN HCL [Concomitant]
  8. AMLODIPINE [Concomitant]
  9. CEFTRIAXONE [Concomitant]
  10. INSULIN LISPRO [Concomitant]
  11. SIMVASTATIN [Concomitant]
  12. SIMVASTATIN [Concomitant]
  13. AMLODIPINE [Concomitant]

REACTIONS (4)
  - HEPATIC FAILURE [None]
  - HYPERKALAEMIA [None]
  - HYPOTHERMIA [None]
  - BACK PAIN [None]
